FAERS Safety Report 4697234-8 (Version None)
Quarter: 2005Q2

REPORT INFORMATION
  Report Type: 
  Country: None (occurrence: None)
  Receive Date: 20050622
  Receipt Date: 20050614
  Transmission Date: 20051028
  Serious: Yes (Other)
  Sender: FDA-Public Use
  Company Number: IT-GLAXOSMITHKLINE-B0384629A

PATIENT
  Age: 28 Year
  Sex: Female
  Weight: 73 kg

DRUGS (2)
  1. KIVEXA [Suspect]
     Indication: HIV INFECTION
     Dosage: 1TAB PER DAY
     Route: 048
     Dates: start: 20050530, end: 20050610
  2. SUSTIVA [Suspect]
     Indication: HIV INFECTION
     Dosage: 600MG PER DAY
     Route: 048
     Dates: start: 20050530

REACTIONS (4)
  - ANGIONEUROTIC OEDEMA [None]
  - PRURITUS [None]
  - PYREXIA [None]
  - RASH [None]
